FAERS Safety Report 5870188-4 (Version None)
Quarter: 2008Q3

REPORT INFORMATION
  Report Type: 
  Country: None (occurrence: None)
  Receive Date: 20080904
  Receipt Date: 20080822
  Transmission Date: 20090109
  Serious: Yes (Other)
  Sender: FDA-Public Use
  Company Number: US-PFIZER INC-2008071085

PATIENT
  Sex: Male
  Weight: 104.5 kg

DRUGS (7)
  1. CHANTIX [Suspect]
     Indication: SMOKING CESSATION THERAPY
     Dates: start: 20080801, end: 20080821
  2. EFFEXOR XR [Concomitant]
  3. DEPAKOTE [Concomitant]
  4. VALIUM [Concomitant]
  5. KLONOPIN [Concomitant]
  6. TRAZODONE HCL [Concomitant]
  7. SYMBYAX [Concomitant]

REACTIONS (7)
  - ANXIETY [None]
  - APATHY [None]
  - BIPOLAR DISORDER [None]
  - DECREASED INTEREST [None]
  - DEPRESSION [None]
  - NERVOUSNESS [None]
  - SUICIDAL IDEATION [None]
